FAERS Safety Report 7460115-0 (Version None)
Quarter: 2011Q2

REPORT INFORMATION
  Report Type: 
  Country: None (occurrence: None)
  Receive Date: 20110505
  Receipt Date: 20110428
  Transmission Date: 20111010
  Serious: Yes (Other)
  Sender: FDA-Public Use
  Company Number: US-ELI_LILLY_AND_COMPANY-US201104008158

PATIENT
  Sex: Male

DRUGS (4)
  1. HUMALOG MIX 75/25 [Suspect]
     Indication: DIABETES MELLITUS
     Dosage: 50 U, EACH MORNING
  2. HUMALOG MIX 75/25 [Suspect]
     Dosage: 25 U, EACH EVENING
  3. HUMALOG MIX 75/25 [Suspect]
     Dosage: 50 U, EACH MORNING
     Dates: start: 20100101
  4. HUMALOG MIX 75/25 [Suspect]
     Dosage: 25 U, EACH EVENING
     Dates: start: 20100101

REACTIONS (4)
  - VISUAL ACUITY REDUCED [None]
  - CEREBROVASCULAR ACCIDENT [None]
  - EYE OPERATION [None]
  - DRUG DISPENSING ERROR [None]
